FAERS Safety Report 6748507-6 (Version None)
Quarter: 2010Q2

REPORT INFORMATION
  Report Type: 
  Country: None (occurrence: None)
  Receive Date: 20100527
  Receipt Date: 20100527
  Transmission Date: 20101027
  Serious: Yes (Disabling)
  Sender: FDA-Public Use
  Company Number: None

PATIENT
  Age: 26 Year
  Sex: Female
  Weight: 81.8 kg

DRUGS (2)
  1. SYNTHROID [Suspect]
     Indication: HYPOTHYROIDISM
     Dosage: 100MCG - 150MCG DAILY ORAL BOTH WERE USED OFF AND ON.
     Route: 048
     Dates: start: 19860101, end: 20070101
  2. LEVOXYL [Suspect]
     Indication: HYPOTHYROIDISM
     Dosage: 100MCG DAILY ORAL BOTH WERE USED OFF AND ON.
     Route: 048
     Dates: start: 19860101, end: 20070101

REACTIONS (11)
  - ABASIA [None]
  - ALOPECIA [None]
  - AMNESIA [None]
  - BODY TEMPERATURE DECREASED [None]
  - CARPAL TUNNEL SYNDROME [None]
  - DRUG INEFFECTIVE [None]
  - LETHARGY [None]
  - MYALGIA [None]
  - PALPITATIONS [None]
  - PLANTAR FASCIITIS [None]
  - TENDONITIS [None]
